FAERS Safety Report 4971737-0 (Version None)
Quarter: 2006Q2

REPORT INFORMATION
  Report Type: 
  Country: None (occurrence: None)
  Receive Date: 20060407
  Receipt Date: 20060329
  Transmission Date: 20061013
  Serious: No
  Sender: FDA-Public Use
  Company Number: 223580

PATIENT
  Age: 36 Year
  Sex: Male

DRUGS (3)
  1. RAPTIVA [Suspect]
     Indication: PSORIASIS
     Dosage: 1.4 ML, 1/WEEK, SUBCUTANEOUS
     Route: 058
     Dates: start: 20040715
  2. LISINOPRIL [Concomitant]
  3. METFORMIN HCL [Concomitant]

REACTIONS (6)
  - BLOOD GLUCOSE INCREASED [None]
  - CONDITION AGGRAVATED [None]
  - GLUCOSE URINE PRESENT [None]
  - PSORIASIS [None]
  - VENOUS THROMBOSIS [None]
  - WHITE BLOOD CELL COUNT INCREASED [None]
